FAERS Safety Report 8487939-5 (Version None)
Quarter: 2012Q3

REPORT INFORMATION
  Report Type: 
  Country: None (occurrence: None)
  Receive Date: 20120705
  Receipt Date: 20120627
  Transmission Date: 20120928
  Serious: Yes (Hospitalization, Other)
  Sender: FDA-Public Use
  Company Number: PHHY2011DE104728

PATIENT
  Sex: Male
  Weight: 80 kg

DRUGS (7)
  1. EXFORGE [Concomitant]
     Dosage: 10 MG AMLODIPINE/ 160 MG VALSARTA
  2. EXFORGE [Concomitant]
     Indication: HYPERTENSION
     Dosage: 10 MG, ONCE/SINGLE
     Route: 048
  3. PANTOPRAZOLE [Concomitant]
     Dosage: 20 MG, BID
     Route: 048
  4. METOPROLOL SUCCINATE [Concomitant]
     Indication: HYPERTENSION
     Dosage: 47.5 MG, ONCE/SINGLE
     Route: 048
  5. SANDOSTATIN LAR [Suspect]
     Indication: PANCREATIC NEUROENDOCRINE TUMOUR METASTATIC
     Dosage: 30 MG, ONCE IN EVERY 4 WEEKS
     Route: 030
     Dates: start: 20110208
  6. MAGNESIUM SULFATE [Concomitant]
     Dosage: 100 MG, BID
  7. CLOPIDOGREL BISULFATE [Concomitant]
     Dosage: 75 MG, ONCE/SINGLE
     Route: 048

REACTIONS (15)
  - OSTEOPOROSIS [None]
  - CARDIAC DISORDER [None]
  - GAIT DISTURBANCE [None]
  - PROPIONIBACTERIUM INFECTION [None]
  - OSTEOARTHRITIS [None]
  - CORONARY ARTERY DISEASE [None]
  - AORTIC ARTERIOSCLEROSIS [None]
  - INFLAMMATORY MARKER INCREASED [None]
  - ASCITES [None]
  - DIZZINESS [None]
  - METASTASES TO LIVER [None]
  - OSTEOSCLEROSIS [None]
  - HYPOKALAEMIA [None]
  - GENERAL PHYSICAL HEALTH DETERIORATION [None]
  - METASTASIS [None]
